FAERS Safety Report 7400390-1 (Version None)
Quarter: 2011Q2

REPORT INFORMATION
  Report Type: 
  Country: None (occurrence: None)
  Receive Date: 20110407
  Receipt Date: 20110329
  Transmission Date: 20111010
  Serious: Yes (Hospitalization, Disabling, Other)
  Sender: FDA-Public Use
  Company Number: US-MERCK-0909USA00249

PATIENT
  Age: 63 Year
  Sex: Female
  Weight: 60 kg

DRUGS (14)
  1. OMEGA-3 MARINE TRIGLYCERIDES [Concomitant]
     Route: 065
  2. ADVIL LIQUI-GELS [Concomitant]
     Route: 065
  3. FOSAMAX [Suspect]
     Route: 048
     Dates: start: 19970101
  4. FOSAMAX [Suspect]
     Route: 048
     Dates: start: 19990801, end: 20020101
  5. IRON (UNSPECIFIED) [Concomitant]
     Route: 065
  6. ANALGESIC (UNSPECIFIED) [Concomitant]
     Route: 065
  7. FOSAMAX [Suspect]
     Indication: OSTEOPENIA
     Route: 048
     Dates: start: 20010501, end: 20090501
  8. CALCIUM (UNSPECIFIED) [Concomitant]
     Indication: OSTEOPENIA
     Route: 065
     Dates: start: 20000101
  9. VITAMINS (UNSPECIFIED) [Concomitant]
     Route: 065
  10. VICODIN [Concomitant]
     Route: 065
  11. FOSAMAX [Suspect]
     Indication: OSTEOPOROSIS
     Route: 048
     Dates: start: 20010501, end: 20090501
  12. FOSAMAX [Suspect]
     Route: 048
     Dates: start: 19990801, end: 20020101
  13. FOSAMAX [Suspect]
     Route: 048
     Dates: start: 19970101
  14. ASPIRIN [Concomitant]
     Route: 065

REACTIONS (31)
  - FALL [None]
  - EXOSTOSIS [None]
  - FOOT FRACTURE [None]
  - HEAD INJURY [None]
  - HYPERGAMMAGLOBULINAEMIA BENIGN MONOCLONAL [None]
  - BONE DISORDER [None]
  - STRESS FRACTURE [None]
  - LACERATION [None]
  - FEMUR FRACTURE [None]
  - ROAD TRAFFIC ACCIDENT [None]
  - NEPHROLITHIASIS [None]
  - SPINAL COLUMN STENOSIS [None]
  - PLEURAL EFFUSION [None]
  - LOW TURNOVER OSTEOPATHY [None]
  - CHEST INJURY [None]
  - RIB FRACTURE [None]
  - HAEMANGIOMA OF LIVER [None]
  - SPINAL FRACTURE [None]
  - COLLAPSE OF LUNG [None]
  - CHONDROPATHY [None]
  - HAND FRACTURE [None]
  - AORTIC ARTERIOSCLEROSIS [None]
  - LUNG NEOPLASM [None]
  - SEASONAL ALLERGY [None]
  - HIATUS HERNIA [None]
  - SPLENOMEGALY [None]
  - SINUS DISORDER [None]
  - NASAL DISORDER [None]
  - OSTEOARTHRITIS [None]
  - ANAEMIA HAEMOLYTIC AUTOIMMUNE [None]
  - STRESS [None]
